FAERS Safety Report 4301258-X (Version None)
Quarter: 2004Q1

REPORT INFORMATION
  Report Type: 
  Country: None (occurrence: None)
  Receive Date: 20040219
  Receipt Date: 20040213
  Transmission Date: 20041129
  Serious: Yes (Hospitalization)
  Sender: FDA-Public Use
  Company Number: 200402027

PATIENT
  Age: 20 Month
  Sex: Female
  Weight: 14 kg

DRUGS (1)
  1. ACETAMINOPHEN [Suspect]
     Indication: PYREXIA
     Dosage: 80 MG   ONCE PO
     Route: 048
     Dates: start: 20040213, end: 20040213

REACTIONS (3)
  - CONVULSION [None]
  - CYANOSIS [None]
  - VOMITING [None]
